FAERS Safety Report 9659267 (Version 1)
Quarter: 2013Q4

REPORT INFORMATION
  Report Type: Spontaneous
  Country: DE (occurrence: DE)
  Receive Date: 20131031
  Receipt Date: 20131031
  Transmission Date: 20140711
  Serious: Yes (Disabling, Congenital Anomaly)
  Sender: FDA-Public Use
  Company Number: DE-ASTRAZENECA-2013SE78852

PATIENT
  Age: 0 Week
  Sex: Female
  Weight: 2 kg

DRUGS (12)
  1. RAMIPRIL [Suspect]
     Indication: GLOMERULONEPHRITIS
     Route: 064
  2. OMEPRAZOL [Suspect]
     Indication: GASTRITIS PROPHYLAXIS
     Route: 064
  3. PROGRAF [Suspect]
     Indication: NEPHROTIC SYNDROME
     Dosage: 1-2 MG/DAY
     Route: 064
  4. PREDNISOLON [Suspect]
     Indication: IMMUNE THROMBOCYTOPENIC PURPURA
     Route: 064
  5. PREDNISOLON [Suspect]
     Indication: IMMUNE THROMBOCYTOPENIC PURPURA
     Route: 064
  6. PREDNISOLON [Suspect]
     Indication: IMMUNE THROMBOCYTOPENIC PURPURA
     Dosage: 40-20 MG/D
     Route: 064
  7. PREDNISOLON [Suspect]
     Indication: IMMUNE THROMBOCYTOPENIC PURPURA
     Route: 064
  8. FUROSEMID [Suspect]
     Indication: GLOMERULONEPHRITIS
     Dosage: 40-80 MG/D
     Route: 064
  9. TORASEMID [Suspect]
     Indication: GLOMERULONEPHRITIS
     Dosage: 20-40 MG/DAY
     Route: 064
  10. FLUVASTATIN [Suspect]
     Indication: HYPERCHOLESTEROLAEMIA
     Route: 064
  11. IDEOS [Concomitant]
     Indication: OSTEOPOROSIS PROPHYLAXIS
     Dosage: CALCIUM 2X500 MG/D AND COLECALCIFEROL 2X10 UG/D
     Route: 064
  12. FOLIC ACID [Concomitant]
     Indication: PROPHYLAXIS OF NEURAL TUBE DEFECT
     Route: 064

REACTIONS (7)
  - Premature baby [Recovering/Resolving]
  - Talipes [Unknown]
  - Cleft palate [Unknown]
  - Patent ductus arteriosus [Unknown]
  - Dysmorphism [Unknown]
  - Atrial septal defect [Unknown]
  - Limb reduction defect [Not Recovered/Not Resolved]
